FAERS Safety Report 15121750 (Version 9)
Quarter: 2019Q1

REPORT INFORMATION
  Report Type: Spontaneous
  Country: US (occurrence: US)
  Receive Date: 20180709
  Receipt Date: 20190108
  Transmission Date: 20190417
  Serious: Yes (Hospitalization, Disabling, Other)
  Sender: FDA-Public Use
  Company Number: US-OTSUKA-2018_015586

PATIENT
  Age: 49 Year
  Sex: Male
  Weight: 96.4 kg

DRUGS (5)
  1. ABILIFY [Suspect]
     Active Substance: ARIPIPRAZOLE
     Indication: BIPOLAR I DISORDER
     Dosage: 5 MG, QD
     Route: 065
     Dates: start: 20040101
  2. TOPROL XL [Concomitant]
     Active Substance: METOPROLOL SUCCINATE
     Indication: HYPERTENSION
     Dosage: 100 MG, QD
     Route: 048
  3. PROZAC [Concomitant]
     Active Substance: FLUOXETINE HYDROCHLORIDE
     Indication: PSYCHOTIC DISORDER
     Dosage: UNK
     Route: 065
  4. HYDROCHLOROTHIAZIDE. [Concomitant]
     Active Substance: HYDROCHLOROTHIAZIDE
     Indication: HYPERTENSION
     Dosage: 25 MG, QD
     Route: 048
  5. ABILIFY [Suspect]
     Active Substance: ARIPIPRAZOLE
     Indication: MAJOR DEPRESSION
     Dosage: 10 MG, QD
     Route: 065
     Dates: end: 20090110

REACTIONS (26)
  - Neuropsychiatric symptoms [Unknown]
  - Abdominal hernia [Unknown]
  - Umbilical hernia [Recovering/Resolving]
  - Mood swings [Unknown]
  - Haemoglobin increased [Unknown]
  - Red blood cell count increased [Unknown]
  - Mean cell haemoglobin concentration increased [Unknown]
  - Total cholesterol/HDL ratio increased [Unknown]
  - Drug dependence [Unknown]
  - Pain [Unknown]
  - Depression [Unknown]
  - Emotional distress [Unknown]
  - Condition aggravated [Recovered/Resolved]
  - Personal relationship issue [Unknown]
  - High density lipoprotein decreased [Unknown]
  - Social problem [Unknown]
  - Suicidal ideation [Unknown]
  - Anhedonia [Unknown]
  - Alanine aminotransferase increased [Unknown]
  - Economic problem [Unknown]
  - Condition aggravated [Unknown]
  - Injury [Unknown]
  - Haematocrit increased [Unknown]
  - Anxiety [Unknown]
  - Blood triglycerides increased [Unknown]
  - Gambling disorder [Recovered/Resolved]

NARRATIVE: CASE EVENT DATE: 2004
